FAERS Safety Report 8078610-2 (Version None)
Quarter: 2012Q1

REPORT INFORMATION
  Report Type: 
  Country: None (occurrence: None)
  Receive Date: 20120124
  Receipt Date: 20120111
  Transmission Date: 20120608
  Serious: Yes (Death, Hospitalization)
  Sender: FDA-Public Use
  Company Number: 1000027245

PATIENT
  Age: 68 Year
  Sex: Female
  Weight: 35 kg

DRUGS (7)
  1. ESCITALOPRAM [Suspect]
     Indication: DEPRESSION
     Dosage: 2 DOSAGE FORM (2 DOSAGE FORMS, 1 IN 1 D), ORAL
     Route: 048
     Dates: start: 20090101, end: 20111031
  2. FORTIMEL (PROTEIN SUPPLEMENTS) (PROTEIN SUPPLEMENTS) [Concomitant]
  3. UN-ALFA (ALFACALCIDOL) (ALFACALCIDOL) [Concomitant]
  4. DIHYDROERGOTAMINE MESYLATE [Suspect]
     Indication: ORTHOSTATIC HYPOTENSION
     Dosage: ORAL
     Route: 048
     Dates: start: 20090101, end: 20111001
  5. DIHYDROERGOTAMINE MESYLATE [Suspect]
     Indication: MIGRAINE
     Dosage: ORAL
     Route: 048
     Dates: start: 20090101, end: 20111001
  6. LEVOTHYROXINE SODIUM [Concomitant]
  7. TENORMIN [Concomitant]

REACTIONS (7)
  - GENERAL PHYSICAL HEALTH DETERIORATION [None]
  - BRONCHIAL DISORDER [None]
  - TUBERCULOSIS [None]
  - PULMONARY FIBROSIS [None]
  - LYMPHADENOPATHY MEDIASTINAL [None]
  - CACHEXIA [None]
  - PSYCHOMOTOR RETARDATION [None]
